FAERS Safety Report 9063504 (Version 1)
Quarter: 2013Q1

REPORT INFORMATION
  Report Type: Report from Study
  Country: US (occurrence: US)
  Receive Date: 20130129
  Receipt Date: 20130129
  Transmission Date: 20140127
  Serious: No
  Sender: FDA-Public Use
  Company Number: US-ABBOTT-12P-163-0950213-00

PATIENT
  Age: 63 Year
  Sex: Female

DRUGS (6)
  1. HUMIRA 40 MG/0.8 ML PEN [Suspect]
     Indication: PSORIASIS
     Dates: start: 20120614, end: 20120614
  2. HUMIRA 40 MG/0.8 ML PEN [Suspect]
     Dates: start: 20120621
  3. UNKNOWN BLOOD PRESSURE MEDICATION [Suspect]
     Indication: BLOOD PRESSURE INCREASED
     Dosage: ONE PILL DAILY
     Dates: start: 20120607
  4. CITALOPRAM [Concomitant]
     Indication: DEPRESSION
     Dosage: ONE PILL AT NIGHT
  5. PREVACID [Concomitant]
     Indication: GASTROOESOPHAGEAL REFLUX DISEASE
     Dosage: ONE PILL DAILY
  6. FLAX SEED OIL [Concomitant]
     Indication: PRODUCT USED FOR UNKNOWN INDICATION
     Dosage: DAILY

REACTIONS (2)
  - Pruritus [Not Recovered/Not Resolved]
  - Psoriasis [Not Recovered/Not Resolved]
